FAERS Safety Report 20302094 (Version 1)
Quarter: 2022Q1

REPORT INFORMATION
  Report Type: Spontaneous
  Country: DE (occurrence: DE)
  Receive Date: 20220105
  Receipt Date: 20220105
  Transmission Date: 20220423
  Serious: Yes (Hospitalization)
  Sender: FDA-Public Use
  Company Number: DE-ADRED-07322-01

PATIENT
  Age: 64 Year
  Sex: Female
  Weight: 108 kg

DRUGS (6)
  1. RAMIPRIL [Suspect]
     Active Substance: RAMIPRIL
     Indication: Product used for unknown indication
     Dosage: 5 MG, 0-0-1-0, TABLETS ()
     Route: 048
  2. HYDROCHLOROTHIAZIDE\RAMIPRIL [Suspect]
     Active Substance: HYDROCHLOROTHIAZIDE\RAMIPRIL
     Indication: Product used for unknown indication
     Dosage: 25/5 MG, 1-0-0-0, TABLETS ()
     Route: 048
  3. ASPIRIN [Suspect]
     Active Substance: ASPIRIN
     Indication: Product used for unknown indication
     Dosage: 100 MG, 0-1-0-0, TABLETS ()
     Route: 048
  4. MetoHEXAL Succ 47.5 mg prolonged-release tablets [Concomitant]
     Indication: Product used for unknown indication
     Dosage: 47.5 MG, 1-0-0-0, PROLONGED-RELEASE TABLETS ()
     Route: 048
  5. LEVOTHYROXINE SODIUM [Concomitant]
     Active Substance: LEVOTHYROXINE SODIUM
     Indication: Product used for unknown indication
     Dosage: 50 UG, 1-0-0-0, TABLETS ()
     Route: 048
  6. dekristolmin 20000I.E. [Concomitant]
     Indication: Product used for unknown indication
     Dosage: 20,000 IU, THURSDAYS, SOFT CAPSULES ()
     Route: 048

REACTIONS (5)
  - Tachycardia [Unknown]
  - Dizziness [Unknown]
  - Haematochezia [Unknown]
  - Pallor [Unknown]
  - Rectal haemorrhage [Unknown]
